FAERS Safety Report 9839147 (Version 1)
Quarter: 2014Q1

REPORT INFORMATION
  Report Type: Spontaneous
  Country: US (occurrence: US)
  Receive Date: 20140123
  Receipt Date: 20140123
  Transmission Date: 20141002
  Serious: Yes (Hospitalization, Other)
  Sender: FDA-Public Use
  Company Number: CHPA2014US000970

PATIENT
  Sex: Female

DRUGS (4)
  1. THERAPEUTIC MINERAL ICE [Suspect]
     Indication: SPINAL PAIN
     Dosage: UNK, PRN
     Route: 061
  2. THERAPEUTIC MINERAL ICE [Suspect]
     Indication: OFF LABEL USE
  3. WARFARIN SODIUM [Suspect]
     Indication: PULMONARY EMBOLISM
  4. VOLTAREN EMULGEL ^NOVARTIS^ [Concomitant]
     Indication: ARTHRITIS
     Route: 061

REACTIONS (2)
  - Pulmonary embolism [Not Recovered/Not Resolved]
  - Malnutrition [Not Recovered/Not Resolved]
